FAERS Safety Report 23462257 (Version 1)
Quarter: 2024Q1

REPORT INFORMATION
  Report Type: Spontaneous
  Country: US (occurrence: US)
  Receive Date: 20240131
  Receipt Date: 20240131
  Transmission Date: 20240410
  Serious: Yes (Other)
  Sender: FDA-Public Use
  Company Number: US-BRISTOL-MYERS SQUIBB COMPANY-2024-015379

PATIENT
  Age: 71 Year
  Sex: Male

DRUGS (1)
  1. LENALIDOMIDE [Suspect]
     Active Substance: LENALIDOMIDE
     Indication: Bone disorder
     Dosage: TAKE ONE CAPSULE BY MOUTH EVERY
     Route: 048

REACTIONS (8)
  - Back pain [Unknown]
  - Spondylitis [Unknown]
  - Dyspnoea [Unknown]
  - Weight increased [Unknown]
  - Nephrolithiasis [Unknown]
  - Rib fracture [Unknown]
  - Memory impairment [Unknown]
  - Off label use [Unknown]
